FAERS Safety Report 9900829 (Version 1)
Quarter: 2014Q1

REPORT INFORMATION
  Report Type: Spontaneous
  Country: US (occurrence: US)
  Receive Date: 20140217
  Receipt Date: 20140217
  Transmission Date: 20141002
  Serious: Yes (Other)
  Sender: FDA-Public Use
  Company Number: US-BAYER-2014-019753

PATIENT
  Age: 79 Year
  Sex: Male
  Weight: 64.4 kg

DRUGS (6)
  1. ALEVE CAPLET [Suspect]
     Indication: ARTHRITIS
     Dosage: 1 DF, BID
     Route: 048
     Dates: start: 201312, end: 20140204
  2. SIMVASTATIN [Concomitant]
  3. VERAPAMIL [Concomitant]
  4. WARFARIN [Concomitant]
  5. FLOMAX (TAMSULOSIN) [Concomitant]
  6. BAYER ASPIRIN REGIMEN ADULT LOW STRENGTH [Concomitant]

REACTIONS (4)
  - Heart rate decreased [None]
  - Heart rate decreased [None]
  - Incorrect drug administration duration [None]
  - General physical health deterioration [None]
